FAERS Safety Report 6871182-7 (Version None)
Quarter: 2010Q3

REPORT INFORMATION
  Report Type: 
  Country: None (occurrence: None)
  Receive Date: 20100723
  Receipt Date: 20100712
  Transmission Date: 20110219
  Serious: Yes (Other)
  Sender: FDA-Public Use
  Company Number: US-PFIZER INC-2010040489

PATIENT
  Sex: Male

DRUGS (1)
  1. CHANTIX [Suspect]
     Indication: SMOKING CESSATION THERAPY
     Dosage: 1MG, UNK
     Dates: start: 20080701, end: 20081215

REACTIONS (5)
  - ANXIETY [None]
  - DEPRESSION [None]
  - INSOMNIA [None]
  - MENTAL DISORDER [None]
  - NIGHTMARE [None]
